FAERS Safety Report 25430470 (Version 2)
Quarter: 2025Q3

REPORT INFORMATION
  Report Type: Spontaneous
  Country: CH (occurrence: CH)
  Receive Date: 20250612
  Receipt Date: 20250714
  Transmission Date: 20251020
  Serious: Yes (Other)
  Sender: TRAVERE THERAPEUTICS
  Company Number: CH-BEH-2025208433

PATIENT
  Sex: Male

DRUGS (7)
  1. FILSPARI [Suspect]
     Active Substance: SPARSENTAN
     Indication: IgA nephropathy
     Route: 065
     Dates: end: 2025
  2. FILSPARI [Suspect]
     Active Substance: SPARSENTAN
     Dosage: 100 MG, QD
     Route: 065
     Dates: start: 2025
  3. DAPAGLIFLOZIN [Concomitant]
     Active Substance: DAPAGLIFLOZIN
  4. ATORVASTATIN [Concomitant]
     Active Substance: ATORVASTATIN
  5. EZETIMIBE [Concomitant]
     Active Substance: EZETIMIBE
  6. LEVOTHYROXINE [Concomitant]
     Active Substance: LEVOTHYROXINE
  7. VITAMIN D3 [Concomitant]
     Active Substance: CHOLECALCIFEROL

REACTIONS (2)
  - Hyperkalaemia [Not Recovered/Not Resolved]
  - Off label use [Unknown]

NARRATIVE: CASE EVENT DATE: 20250101
